FAERS Safety Report 4278081-8 (Version None)
Quarter: 2004Q1

REPORT INFORMATION
  Report Type: 
  Country: None (occurrence: None)
  Receive Date: 20040121
  Receipt Date: 19990717
  Transmission Date: 20041129
  Serious: No
  Sender: FDA-Public Use
  Company Number: 7187

PATIENT
  Sex: Male

DRUGS (1)
  1. METHOTREXATE [Suspect]
     Indication: HODGKIN'S DISEASE
     Dosage: 800 MG PER_CYCLE IV
     Route: 042

REACTIONS (1)
  - ANAPHYLACTIC SHOCK [None]
